FAERS Safety Report 6370173-2 (Version None)
Quarter: 2009Q3

REPORT INFORMATION
  Report Type: 
  Country: None (occurrence: None)
  Receive Date: 20090923
  Receipt Date: 20090914
  Transmission Date: 20100115
  Serious: Yes (Other)
  Sender: FDA-Public Use
  Company Number: FR-ABBOTT-09P-056-0597373-00

PATIENT
  Sex: Male

DRUGS (1)
  1. HUMIRA [Suspect]
     Indication: SPONDYLITIS

REACTIONS (1)
  - VOGT-KOYANAGI-HARADA SYNDROME [None]
